FAERS Safety Report 7918824-2 (Version None)
Quarter: 2011Q4

REPORT INFORMATION
  Report Type: 
  Country: None (occurrence: None)
  Receive Date: 20111116
  Receipt Date: 20111103
  Transmission Date: 20120403
  Serious: Yes (Hospitalization)
  Sender: FDA-Public Use
  Company Number: PHHY2011DK098256

PATIENT
  Sex: Male

DRUGS (30)
  1. PREDNISONE TAB [Suspect]
     Indication: DIFFUSE LARGE B-CELL LYMPHOMA
     Dosage: 100 MG/DAY
     Route: 048
     Dates: start: 20110426
  2. CYCLOPHOSPHAMIDE [Suspect]
     Indication: DIFFUSE LARGE B-CELL LYMPHOMA
     Dosage: 1500 MG/DAY
     Route: 042
     Dates: start: 20110426
  3. MORPHINE [Concomitant]
     Route: 048
  4. DOXORUBICIN HCL [Suspect]
     Dosage: 100 MG, QD
     Route: 042
     Dates: start: 20110628
  5. RITUXIMAB [Suspect]
     Dosage: 750 MG/DAY
     Route: 042
     Dates: start: 20110628, end: 20110702
  6. LANSOPRAZOLE [Concomitant]
     Route: 048
  7. SENNOSIDES A+B [Concomitant]
  8. DOXORUBICIN HCL [Suspect]
     Dosage: 100 MG, QD
     Route: 042
     Dates: start: 20110803
  9. VINCRISTINE [Suspect]
     Dosage: 2 MG/DAY
     Route: 042
     Dates: start: 20110628
  10. RITUXIMAB [Suspect]
     Indication: DIFFUSE LARGE B-CELL LYMPHOMA
     Dosage: 750 MG/DAY
     Route: 042
     Dates: start: 20110426
  11. RITUXIMAB [Suspect]
     Dosage: 750 MG/DAY
     Route: 042
     Dates: start: 20110803
  12. NEUPOGEN [Suspect]
     Route: 058
     Dates: start: 20110629
  13. DOXORUBICIN HCL [Suspect]
     Indication: DIFFUSE LARGE B-CELL LYMPHOMA
     Dosage: 100 MG, QD
     Route: 042
     Dates: start: 20110426
  14. VINCRISTINE [Suspect]
     Dosage: 2 MG/DAY
     Route: 042
     Dates: start: 20110803
  15. NEUPOGEN [Suspect]
     Dosage: 6 MG, UNK
     Route: 058
     Dates: start: 20110804
  16. ALLOPURINOL [Concomitant]
  17. MOVIPREP [Concomitant]
  18. ENOXAPARIN SODIUM [Concomitant]
     Route: 058
     Dates: start: 20110826
  19. PREDNISONE TAB [Suspect]
     Dosage: 100 MG/DAY
     Route: 048
     Dates: start: 20110803
  20. CYCLOPHOSPHAMIDE [Suspect]
     Dosage: 1500 MG/DAY
     Route: 042
     Dates: start: 20110803
  21. RITUXIMAB [Suspect]
     Dosage: 750 MG/DAY
     Route: 042
     Dates: start: 20110503
  22. CYCLOPHOSPHAMIDE [Suspect]
     Dosage: 1500 MG/DAY
     Route: 042
     Dates: start: 20110628
  23. NEUPOGEN [Suspect]
     Indication: DIFFUSE LARGE B-CELL LYMPHOMA
     Dosage: 6 MG, UNK
     Route: 058
     Dates: start: 20110427
  24. ACYCLOVIR [Concomitant]
     Dosage: 400 MG, QD
     Route: 048
     Dates: start: 20110412
  25. VINCRISTINE [Suspect]
     Indication: DIFFUSE LARGE B-CELL LYMPHOMA
     Dosage: 2 MG/DAY
     Route: 042
     Dates: start: 20110426
  26. SULFAMETHOXAZOLE AND TRIMETHOPRIM [Concomitant]
     Dosage: 400 MG
     Dates: start: 20110628
  27. LACTULOSE [Concomitant]
     Dosage: 25 ML, QD
     Route: 048
  28. FUROSEMIDE [Concomitant]
     Dosage: 40 MG, QD
     Route: 048
  29. PREDNISONE TAB [Suspect]
     Dosage: 100 MG/DAY
     Route: 048
     Dates: start: 20110628
  30. AMLODIPINE [Concomitant]
     Route: 048

REACTIONS (9)
  - PYREXIA [None]
  - PNEUMONIA [None]
  - FEBRILE NEUTROPENIA [None]
  - HAEMATOMA [None]
  - MUSCLE RUPTURE [None]
  - MUSCULOSKELETAL PAIN [None]
  - SWELLING [None]
  - PLEURAL EFFUSION [None]
  - PULMONARY EMBOLISM [None]
